FAERS Safety Report 4862562-X (Version None)
Quarter: 2005Q4

REPORT INFORMATION
  Report Type: 
  Country: None (occurrence: None)
  Receive Date: 20051221
  Receipt Date: 20051214
  Transmission Date: 20060501
  Serious: Yes (Other)
  Sender: FDA-Public Use
  Company Number: GB-GLAXOSMITHKLINE-B0403659A

PATIENT
  Sex: Male

DRUGS (5)
  1. COMBIVIR [Suspect]
     Indication: HIV INFECTION
     Dosage: 1TAB TWICE PER DAY
     Route: 048
     Dates: start: 19980101
  2. SEROXAT [Suspect]
     Indication: DEPRESSION
     Dosage: 20MG PER DAY
     Route: 048
     Dates: start: 20051001
  3. ACYCLOVIR [Concomitant]
  4. EFAVIRENZ [Concomitant]
  5. BENZODIAZEPINES [Concomitant]

REACTIONS (3)
  - AMNESIA [None]
  - FATIGUE [None]
  - LOSS OF CONSCIOUSNESS [None]
